FAERS Safety Report 15753038 (Version 4)
Quarter: 2019Q1

REPORT INFORMATION
  Report Type: Report from Study
  Country: US (occurrence: US)
  Receive Date: 20181221
  Receipt Date: 20190116
  Transmission Date: 20190417
  Serious: Yes (Hospitalization, Disabling)
  Sender: FDA-Public Use
  Company Number: US-ACTELION-A-NJ2018-181802

PATIENT
  Age: 47 Year
  Sex: Female
  Weight: 107.94 kg

DRUGS (15)
  1. OPSUMIT [Suspect]
     Active Substance: MACITENTAN
     Indication: PULMONARY ARTERIAL HYPERTENSION
     Dosage: 10 MG, QD
     Route: 048
     Dates: start: 20180921
  2. FLOLAN [Suspect]
     Active Substance: EPOPROSTENOL SODIUM
     Indication: PRODUCT USED FOR UNKNOWN INDICATION
     Dosage: 35 NG/24 HOURS
     Route: 065
     Dates: start: 20180417, end: 20181213
  3. TYLENOL [Concomitant]
     Active Substance: ACETAMINOPHEN
     Dosage: 325-500MG, PRN
     Dates: start: 201804
  4. VELETRI [Suspect]
     Active Substance: EPOPROSTENOL
     Indication: PULMONARY ARTERIAL HYPERTENSION
     Dosage: UNK
     Route: 042
     Dates: start: 20181213
  5. OMEPRAZOLE. [Concomitant]
     Active Substance: OMEPRAZOLE
     Dosage: 40 MG, QD
  6. XARELTO [Concomitant]
     Active Substance: RIVAROXABAN
     Dosage: 20 MG, QD
     Dates: start: 201711
  7. BACLOFEN. [Concomitant]
     Active Substance: BACLOFEN
     Dosage: 10 MG, PRN
     Dates: start: 2017
  8. ALBUTEROL. [Concomitant]
     Active Substance: ALBUTEROL
     Dosage: UNK, PRN
     Dates: start: 2017
  9. OPSUMIT [Suspect]
     Active Substance: MACITENTAN
     Dosage: 10 MG, QD
     Route: 048
     Dates: start: 20180921
  10. ADCIRCA [Concomitant]
     Active Substance: TADALAFIL
     Dosage: 20 MG, BID
     Dates: start: 201809
  11. CHLORZOXAZONE. [Concomitant]
     Active Substance: CHLORZOXAZONE
     Dosage: 500 MG, BID
     Dates: start: 2016
  12. HYDROCODONE/ACETAMINOPHEN [Concomitant]
     Active Substance: ACETAMINOPHEN\HYDROCODONE
     Dosage: 10/325MG
     Dates: start: 2017
  13. SPIRIVA [Concomitant]
     Active Substance: TIOTROPIUM BROMIDE MONOHYDRATE
     Dosage: 2.5 MG, 2 PUFF DAILY
     Dates: start: 2017
  14. MIRTAZAPINE. [Concomitant]
     Active Substance: MIRTAZAPINE
     Dosage: 15 MG, QPM
     Dates: start: 201809
  15. PROZAC [Concomitant]
     Active Substance: FLUOXETINE HYDROCHLORIDE
     Dosage: 60 MG, QD
     Dates: start: 201708

REACTIONS (18)
  - Blood iron decreased [Recovering/Resolving]
  - Oedema [Unknown]
  - Diarrhoea [Unknown]
  - Hypersensitivity [Recovered/Resolved]
  - Unevaluable event [Recovered/Resolved]
  - Haemoglobin decreased [Recovering/Resolving]
  - Swelling [Recovering/Resolving]
  - Dyspnoea [Recovering/Resolving]
  - Cardiovascular insufficiency [Recovered/Resolved]
  - Adverse event [Unknown]
  - Hospitalisation [Unknown]
  - Cardiac failure [Unknown]
  - Malaise [Unknown]
  - Weight increased [Recovering/Resolving]
  - Pleural effusion [Not Recovered/Not Resolved]
  - Anaemia [Unknown]
  - Head discomfort [Recovered/Resolved]
  - Serum ferritin decreased [Recovering/Resolving]

NARRATIVE: CASE EVENT DATE: 20181115
